FAERS Safety Report 16751831 (Version 1)
Quarter: 2019Q3

REPORT INFORMATION
  Report Type: Spontaneous
  Country: FR (occurrence: FR)
  Receive Date: 20190828
  Receipt Date: 20190828
  Transmission Date: 20191005
  Serious: Yes (Death, Other)
  Sender: FDA-Public Use
  Company Number: FR-ELI_LILLY_AND_COMPANY-FR201908011162

PATIENT
  Age: 84 Year
  Sex: Male
  Weight: 66 kg

DRUGS (11)
  1. TELMISARTAN. [Concomitant]
     Active Substance: TELMISARTAN
     Indication: HYPERTENSION
     Route: 048
  2. ALIMTA [Suspect]
     Active Substance: PEMETREXED DISODIUM
     Indication: MESOTHELIOMA
     Dosage: 720 MG, CYCLICAL
     Route: 042
     Dates: start: 20190719, end: 20190719
  3. ESOMEPRAZOLE. [Concomitant]
     Active Substance: ESOMEPRAZOLE MAGNESIUM
     Indication: PROPHYLAXIS
     Route: 048
     Dates: end: 20190726
  4. BISOPROLOL FUMARATE. [Concomitant]
     Active Substance: BISOPROLOL FUMARATE
     Indication: HYPERTENSION
     Route: 048
  5. ACIDE FOLIQUE [Concomitant]
     Active Substance: FOLIC ACID
     Indication: PROPHYLAXIS
     Route: 048
  6. WARFARIN SODIUM. [Concomitant]
     Active Substance: WARFARIN SODIUM
     Indication: ATRIAL FIBRILLATION
     Route: 048
  7. FUROSEMIDE. [Concomitant]
     Active Substance: FUROSEMIDE
     Indication: HYPERTENSION
     Route: 048
  8. CINACALCET. [Concomitant]
     Active Substance: CINACALCET
     Indication: HYPERPARATHYROIDISM SECONDARY
     Route: 048
  9. LEVOTHYROXINE SODIQUE [Concomitant]
     Active Substance: LEVOTHYROXINE SODIUM
     Indication: HYPOTHYROIDISM
     Route: 048
  10. METHOTREXATE. [Interacting]
     Active Substance: METHOTREXATE
     Indication: RHEUMATIC DISORDER
     Route: 058
     Dates: end: 20190726
  11. CARBOPLATINE [Interacting]
     Active Substance: CARBOPLATIN
     Indication: MESOTHELIOMA
     Dosage: 279.5 MG, CYCLICAL
     Route: 042
     Dates: start: 20190719, end: 20190719

REACTIONS (5)
  - Infection [Unknown]
  - Drug interaction [Unknown]
  - Off label use [Unknown]
  - Aplasia [Unknown]
  - Multiple organ dysfunction syndrome [Fatal]

NARRATIVE: CASE EVENT DATE: 201907
